FAERS Safety Report 8493000-6 (Version None)
Quarter: 2012Q3

REPORT INFORMATION
  Report Type: 
  Country: None (occurrence: None)
  Receive Date: 20120706
  Receipt Date: 20120627
  Transmission Date: 20120928
  Serious: Yes (Other)
  Sender: FDA-Public Use
  Company Number: US-ASTRAZENECA-2011SE45230

PATIENT
  Age: 59 Year
  Sex: Female

DRUGS (3)
  1. CRESTOR [Suspect]
     Route: 048
  2. NEXIUM [Suspect]
     Route: 048
  3. PRILOSEC [Suspect]
     Route: 048

REACTIONS (9)
  - ANXIETY [None]
  - SKIN LESION [None]
  - SKIN CHAPPED [None]
  - ADVERSE EVENT [None]
  - DRUG INEFFECTIVE [None]
  - SKIN INFECTION [None]
  - HAEMORRHAGE [None]
  - BACTERIAL INFECTION [None]
  - GASTRIC INFECTION [None]
